FAERS Safety Report 5640948-3 (Version None)
Quarter: 2008Q1

REPORT INFORMATION
  Report Type: 
  Country: None (occurrence: None)
  Receive Date: 20080227
  Receipt Date: 20080221
  Transmission Date: 20080703
  Serious: Yes (Hospitalization, Other)
  Sender: FDA-Public Use
  Company Number: CZ-MERCK-0802CZE00003

PATIENT
  Sex: Male

DRUGS (2)
  1. ZETIA [Suspect]
     Route: 065
  2. ZOCOR [Concomitant]
     Route: 065

REACTIONS (1)
  - CHOLESTASIS [None]
